FAERS Safety Report 6185630-1 (Version None)
Quarter: 2009Q2

REPORT INFORMATION
  Report Type: 
  Country: None (occurrence: None)
  Receive Date: 20090511
  Receipt Date: 20090505
  Transmission Date: 20091009
  Serious: Yes (Other)
  Sender: FDA-Public Use
  Company Number: TR-B.I. PHARMACEUTICALS,INC./RIDGEFIELD-2009-DE-03644GD

PATIENT
  Sex: Female

DRUGS (1)
  1. IPRATROPIUM BROMIDE [Suspect]
     Dosage: 0.16 MG/KG

REACTIONS (3)
  - BRONCHOPULMONARY DYSPLASIA [None]
  - OXYGEN CONSUMPTION INCREASED [None]
  - OXYGEN SATURATION DECREASED [None]
